FAERS Safety Report 6535435-4 (Version None)
Quarter: 2010Q1

REPORT INFORMATION
  Report Type: 
  Country: None (occurrence: None)
  Receive Date: 20100111
  Receipt Date: 20100111
  Transmission Date: 20100710
  Serious: No
  Sender: FDA-Public Use
  Company Number: None

PATIENT
  Sex: Male
  Weight: 81.6475 kg

DRUGS (1)
  1. EVOXAC [Suspect]
     Indication: DRY MOUTH
     Dosage: 30 MG 3 TIMES A DAY
     Dates: start: 20091102

REACTIONS (4)
  - EYE PAIN [None]
  - PARAESTHESIA [None]
  - STOMATITIS [None]
  - TOOTHACHE [None]
